FAERS Safety Report 9447704 (Version 1)
Quarter: 2013Q3

REPORT INFORMATION
  Report Type: Spontaneous
  Country: FR (occurrence: None)
  Receive Date: 20130805
  Receipt Date: 20130805
  Transmission Date: 20140515
  Serious: Yes (Hospitalization)
  Sender: FDA-Public Use
  Company Number: 222703

PATIENT
  Age: 82 Year
  Sex: Male

DRUGS (6)
  1. INNOHEP (TINZAPARIN SODIUM) [Suspect]
     Indication: PRODUCT USED FOR UNKNOWN INDICATION
     Route: 058
     Dates: start: 20130419
  2. AUGMENTIN [Suspect]
     Indication: OTITIS MEDIA
     Route: 048
     Dates: start: 20130426
  3. INEXIUM [Suspect]
     Indication: PRODUCT USED FOR UNKNOWN INDICATION
     Route: 048
     Dates: start: 20130426, end: 20130430
  4. PREVISCAN (FLUINDIONE) [Concomitant]
  5. CARDEBSIEL (BISOPROLOL FUMARATE) [Concomitant]
  6. PARACETAMOL (PARACETAMOL) [Concomitant]

REACTIONS (7)
  - Otitis media [None]
  - Rash erythematous [None]
  - Chills [None]
  - Myalgia [None]
  - Purpura [None]
  - Toxic skin eruption [None]
  - Rash maculo-papular [None]
